FAERS Safety Report 8511119-8 (Version None)
Quarter: 2012Q3

REPORT INFORMATION
  Report Type: 
  Country: None (occurrence: None)
  Receive Date: 20120702
  Receipt Date: 20120619
  Transmission Date: 20120928
  Serious: Yes (Death)
  Sender: FDA-Public Use
  Company Number: DSA_58073_2012

PATIENT

DRUGS (6)
  1. IRINOTECAN HCL [Suspect]
     Indication: COLORECTAL CANCER METASTATIC
     Dosage: (180MG/M2; EVERY OTHER WEEK INTRAVENOUS (NOT OTHERWISE SPECIFIED))
     Route: 042
  2. FLUOROURACIL [Suspect]
     Indication: COLORECTAL CANCER METASTATIC
     Dosage: (400MG/M2; ONCE INTRAVENOUS BOLUS)
     Route: 040
  3. LEUCOVORIN CALCIUM [Suspect]
     Indication: COLORECTAL CANCER METASTATIC
     Dosage: (200MG/M2; EVERY OTHER WEEK INTRAVENOUS (NOT OTHERWISE SPECIFIEED))
     Route: 042
  4. FLUOROURACIL [Suspect]
     Dosage: (2400MG/M2; EVERY OTHER WEEK INTRAVENOUS (NOT OTHERWISE SPECIFIED))
     Route: 042
  5. OXALIPLATIN [Suspect]
     Indication: COLORECTAL CANCER METASTATIC
     Dosage: (85MG/M2; EVERY OTHER WEEK INTRAVENOUS (NOT OTHERWISE SPECIFIED))
     Route: 042
  6. CETUXIMAB (CETUXIMAB) [Suspect]
     Indication: COLORECTAL CANCER METASTATIC
     Dosage: SEE IMAGE
     Route: 042

REACTIONS (2)
  - COLORECTAL CANCER METASTATIC [None]
  - NEOPLASM PROGRESSION [None]
